FAERS Safety Report 25816156 (Version 1)
Quarter: 2025Q3

REPORT INFORMATION
  Report Type: Report from Study
  Country: US (occurrence: US)
  Receive Date: 20250918
  Receipt Date: 20250918
  Transmission Date: 20251020
  Serious: Yes (Other)
  Sender: SUNOVION
  Company Number: US-SUMITOMO PHARMA SWITZERLAND GMBH-2025SPA001282

PATIENT
  Age: 87 Year
  Sex: Male

DRUGS (7)
  1. ORGOVYX [Suspect]
     Active Substance: RELUGOLIX
     Indication: Prostate cancer
     Dosage: 120 MG, QD
     Route: 048
     Dates: start: 2022
  2. KEYTRUDA [Suspect]
     Active Substance: PEMBROLIZUMAB
     Indication: Skin cancer
  3. AMLODIPINE [Concomitant]
     Active Substance: AMLODIPINE BESYLATE
  4. VITAMIN C [Concomitant]
     Active Substance: ASCORBIC ACID
  5. ERLEADA [Concomitant]
     Active Substance: APALUTAMIDE
  6. PRAVASTATIN [Concomitant]
     Active Substance: PRAVASTATIN
  7. TELMISARTAN [Concomitant]
     Active Substance: TELMISARTAN

REACTIONS (4)
  - Squamous cell carcinoma [Unknown]
  - Rash [Unknown]
  - Incorrect dose administered [Recovered/Resolved]
  - Therapy interrupted [Recovered/Resolved]
